FAERS Safety Report 19389869 (Version 2)
Quarter: 2021Q3

REPORT INFORMATION
  Report Type: Report from Study
  Country: IT (occurrence: IT)
  Receive Date: 20210608
  Receipt Date: 20210706
  Transmission Date: 20211014
  Serious: Yes (Death, Hospitalization, Other)
  Sender: FDA-Public Use
  Company Number: IT-BRISTOL-MYERS SQUIBB COMPANY-BMS-2021-035210

PATIENT
  Age: 50 Year
  Sex: Male

DRUGS (2)
  1. NIVOLUMAB [Suspect]
     Active Substance: NIVOLUMAB
     Indication: SMALL CELL LUNG CANCER
     Dosage: 480 MILLIGRAM
     Route: 042
     Dates: start: 20210129
  2. PULRODEMSTAT BESILATE. [Suspect]
     Active Substance: PULRODEMSTAT BESILATE
     Indication: SMALL CELL LUNG CANCER
     Dosage: 40 MILLIGRAM CAPSULE
     Route: 048
     Dates: start: 20210129

REACTIONS (3)
  - Death [Fatal]
  - Hypokalaemia [Not Recovered/Not Resolved]
  - Haematuria [Not Recovered/Not Resolved]

NARRATIVE: CASE EVENT DATE: 20210401
